FAERS Safety Report 4329994-X (Version None)
Quarter: 2004Q1

REPORT INFORMATION
  Report Type: 
  Country: None (occurrence: None)
  Receive Date: 20040329
  Receipt Date: 20040315
  Transmission Date: 20041129
  Serious: Yes (Hospitalization)
  Sender: FDA-Public Use
  Company Number: 04P-056-0253639-00

PATIENT
  Age: 40 Year
  Sex: Male

DRUGS (10)
  1. DEPAKOTE [Suspect]
     Indication: BIPOLAR DISORDER
     Dosage: PER ORAL (SEE IMAGE)
     Route: 048
     Dates: end: 20031020
  2. DEPAKOTE [Suspect]
     Indication: SUICIDE ATTEMPT
     Dosage: PER ORAL (SEE IMAGE)
     Route: 048
     Dates: end: 20031020
  3. DEPAKOTE [Suspect]
     Indication: BIPOLAR DISORDER
     Dosage: PER ORAL (SEE IMAGE)
     Route: 048
     Dates: start: 20031021, end: 20031021
  4. DEPAKOTE [Suspect]
     Indication: SUICIDE ATTEMPT
     Dosage: PER ORAL (SEE IMAGE)
     Route: 048
     Dates: start: 20031021, end: 20031021
  5. CLONAZEPAM [Suspect]
     Indication: BIPOLAR DISORDER
     Dosage: PER ORAL (SEE ORAL)
     Route: 048
     Dates: end: 20031020
  6. CLONAZEPAM [Suspect]
     Indication: SUICIDE ATTEMPT
     Dosage: PER ORAL (SEE ORAL)
     Route: 048
     Dates: end: 20031020
  7. CLONAZEPAM [Suspect]
     Indication: BIPOLAR DISORDER
     Dosage: PER ORAL (SEE ORAL)
     Route: 048
     Dates: start: 20031021, end: 20031021
  8. CLONAZEPAM [Suspect]
     Indication: SUICIDE ATTEMPT
     Dosage: PER ORAL (SEE ORAL)
     Route: 048
     Dates: start: 20031021, end: 20031021
  9. OXAZEPAM [Suspect]
     Indication: SUICIDE ATTEMPT
     Dosage: PER ORAL
     Route: 048
     Dates: start: 20031021, end: 20031021
  10. OLANZAPINE [Concomitant]

REACTIONS (5)
  - INTENTIONAL OVERDOSE [None]
  - INTENTIONAL SELF-INJURY [None]
  - PHLEBOTOMY [None]
  - SUICIDE ATTEMPT [None]
  - THROMBOCYTOPENIA [None]
